FAERS Safety Report 19793318 (Version 1)
Quarter: 2021Q3

REPORT INFORMATION
  Report Type: Spontaneous
  Country: PL (occurrence: PL)
  Receive Date: 20210906
  Receipt Date: 20210906
  Transmission Date: 20211014
  Serious: Yes (Other)
  Sender: FDA-Public Use
  Company Number: NVSC2021PL197584

PATIENT
  Age: 59 Year
  Sex: Female
  Weight: 44 kg

DRUGS (2)
  1. CARBOPLATIN. [Suspect]
     Active Substance: CARBOPLATIN
     Indication: CERVIX CARCINOMA
     Dosage: 476 MG
     Route: 042
     Dates: start: 20201210
  2. PACLITAXEL. [Suspect]
     Active Substance: PACLITAXEL
     Indication: CERVIX CARCINOMA
     Dosage: 118 MG
     Route: 042
     Dates: start: 20201210

REACTIONS (1)
  - Neutropenia [Unknown]
